FAERS Safety Report 20429535 (Version 1)
Quarter: 2022Q1

REPORT INFORMATION
  Report Type: Report from Study
  Country: NL (occurrence: NL)
  Receive Date: 20220204
  Receipt Date: 20220204
  Transmission Date: 20220423
  Serious: Yes (Hospitalization, Other)
  Sender: FDA-Public Use
  Company Number: NL-SHIRE-NL201838319

PATIENT

DRUGS (14)
  1. ONCASPAR [Suspect]
     Active Substance: PEGASPARGASE
     Indication: Acute lymphocytic leukaemia
     Dosage: 2650 IU, QD
     Route: 042
     Dates: start: 20150115, end: 20150115
  2. CLOFARABINE [Suspect]
     Active Substance: CLOFARABINE
     Indication: Acute lymphocytic leukaemia
     Dosage: 80 MG, 1X/DAY:QD
     Route: 065
     Dates: start: 20150108, end: 20150112
  3. PREDNISOLONE [Suspect]
     Active Substance: PREDNISOLONE
     Indication: Acute lymphocytic leukaemia
     Dosage: 106 MG, 1X/DAY:QD
     Route: 065
     Dates: start: 20150115, end: 20150122
  4. PREDNISOLONE [Suspect]
     Active Substance: PREDNISOLONE
     Dosage: 110 MG, UNKNOWN
     Route: 048
     Dates: start: 20150407, end: 20150409
  5. VINCRISTINE [Suspect]
     Active Substance: VINCRISTINE
     Indication: Acute lymphocytic leukaemia
     Dosage: 2 MG, 1X/DAY:QD
     Route: 065
     Dates: start: 20150115, end: 20150122
  6. VINCRISTINE [Suspect]
     Active Substance: VINCRISTINE
     Dosage: 2 MG, UNKNOWN
     Route: 065
     Dates: start: 20150407, end: 20150407
  7. DAUNORUBICIN [Suspect]
     Active Substance: DAUNORUBICIN
     Indication: Acute lymphocytic leukaemia
     Dosage: 106 UNK, 1X/DAY:QD
     Route: 065
     Dates: start: 20150122, end: 20150122
  8. METHOTREXATE [Suspect]
     Active Substance: METHOTREXATE
     Indication: Acute lymphocytic leukaemia
     Dosage: 15 MG, 1X/DAY:QD
     Route: 037
     Dates: start: 20150119, end: 20150126
  9. METHOTREXATE [Suspect]
     Active Substance: METHOTREXATE
     Dosage: 1335 MG, UNKNOWN
     Route: 042
     Dates: start: 20150407, end: 20150409
  10. METHOTREXATE [Suspect]
     Active Substance: METHOTREXATE
     Dosage: 1200 MG
     Route: 042
     Dates: start: 20150407, end: 20180407
  11. METHOTREXATE [Suspect]
     Active Substance: METHOTREXATE
     Dosage: 15 MG, UNKNOWN
     Route: 037
     Dates: start: 20150408, end: 20150408
  12. DEXAMETHASONE [Suspect]
     Active Substance: DEXAMETHASONE
     Indication: Acute lymphocytic leukaemia
     Dosage: 4 MG, 1X/DAY:QD
     Route: 037
     Dates: start: 20150113, end: 20150126
  13. DEXAMETHASONE [Suspect]
     Active Substance: DEXAMETHASONE
     Dosage: 4 MG, UNKNOWN
     Route: 037
     Dates: start: 20150408, end: 20150408
  14. MERCAPTOPURINE [Suspect]
     Active Substance: MERCAPTOPURINE
     Indication: Acute lymphocytic leukaemia
     Dosage: 150 MG, UNKNOWN
     Route: 065
     Dates: start: 20150407, end: 20150409

REACTIONS (2)
  - Hepatotoxicity [Recovered/Resolved]
  - Acute kidney injury [Recovered/Resolved]

NARRATIVE: CASE EVENT DATE: 20150123
